FAERS Safety Report 7217855-8 (Version None)
Quarter: 2011Q1

REPORT INFORMATION
  Report Type: 
  Country: None (occurrence: None)
  Receive Date: 20110110
  Receipt Date: 20110107
  Transmission Date: 20110831
  Serious: Yes (Hospitalization)
  Sender: FDA-Public Use
  Company Number: A0904009A

PATIENT
  Age: 45 Year
  Sex: Female

DRUGS (5)
  1. PAXIL [Concomitant]
     Indication: ANTIDEPRESSANT THERAPY
     Route: 048
  2. ALLI [Suspect]
     Indication: WEIGHT LOSS DIET
     Route: 048
  3. ANTI-HYPERTENSIVE [Concomitant]
     Indication: HYPERTENSION
     Route: 048
  4. EFFEXOR [Concomitant]
     Indication: ANTIDEPRESSANT THERAPY
     Route: 048
  5. LEXAPRO [Concomitant]
     Indication: ANTIDEPRESSANT THERAPY
     Route: 048

REACTIONS (14)
  - ABDOMINAL PAIN [None]
  - FAECAL INCONTINENCE [None]
  - HYPERTENSION [None]
  - DIARRHOEA [None]
  - INFECTION [None]
  - PAINFUL RESPIRATION [None]
  - DIVERTICULITIS [None]
  - POLYP [None]
  - ABSCESS [None]
  - RECTAL HAEMORRHAGE [None]
  - DYSPNOEA [None]
  - MALAISE [None]
  - HAEMATOCHEZIA [None]
  - DIARRHOEA HAEMORRHAGIC [None]
